FAERS Safety Report 9617718 (Version 2)
Quarter: 2013Q4

REPORT INFORMATION
  Report Type: Spontaneous
  Country: CA (occurrence: CA)
  Receive Date: 20131011
  Receipt Date: 20131011
  Transmission Date: 20140711
  Serious: Yes (Life-Threatening, Other)
  Sender: FDA-Public Use
  Company Number: CA-ABBVIE-13P-028-1036612-00

PATIENT
  Age: 39 Year
  Sex: Male
  Weight: 77.18 kg

DRUGS (19)
  1. NORVIR [Suspect]
     Indication: HIV INFECTION
     Dosage: IN THE PM
     Route: 048
     Dates: start: 20080315, end: 20111104
  2. ANTI-NAUSEANT [Interacting]
     Indication: PRODUCT USED FOR UNKNOWN INDICATION
  3. APO DIMENHYDRINATE [Interacting]
     Indication: PRODUCT USED FOR UNKNOWN INDICATION
  4. GRAVOL [Suspect]
     Indication: ATAXIA
     Dosage: THROUGH THE DAY
     Route: 048
     Dates: start: 20060515
  5. GRAVOL [Suspect]
     Indication: VOMITING
     Dosage: DOSAGE HAS LESSENED
  6. ADVAIR [Suspect]
     Indication: ASTHMA
     Dosage: 2 PUFFS TWICE AM AND PM
  7. RIVOTRIL [Suspect]
     Indication: HIV INFECTION
     Dosage: 1 1/2 TABS ONCE IN PM
     Dates: start: 1985
  8. ATRIPLA [Concomitant]
     Indication: HIV INFECTION
     Dosage: NNRTI 3 IN 1, ONCE DAILY
  9. CLONAZEPAM [Concomitant]
     Indication: MOOD ALTERED
     Dosage: 1 1/2 TABS ONCE DAILY
  10. PAXIL [Concomitant]
     Indication: MENTAL DISORDER
     Dosage: 2 TABS ONCE IN AM
  11. PREVACID [Concomitant]
     Indication: GASTROOESOPHAGEAL REFLUX DISEASE
  12. PREZISTA [Concomitant]
     Indication: HIV INFECTION
     Dosage: 2 TABS ONCE IN PM
  13. RATIO-CLONAZEPAM [Concomitant]
     Indication: PRODUCT USED FOR UNKNOWN INDICATION
  14. RATIO-PAROXETINE [Concomitant]
     Indication: PRODUCT USED FOR UNKNOWN INDICATION
  15. SYNTHROID [Concomitant]
     Indication: PITUITARY TUMOUR BENIGN
     Dosage: QUARTER TAB 0.75 MG ONCE IN AM
  16. TRUVADA [Concomitant]
     Indication: PRODUCT USED FOR UNKNOWN INDICATION
  17. CANNABIS [Concomitant]
     Indication: PRODUCT USED FOR UNKNOWN INDICATION
     Dosage: LAST USED 4 OR MORE YEARS PRIOR
  18. EMTRICITABINE W/TENOFOVIR [Concomitant]
     Indication: HIV INFECTION
     Dosage: 200 MG + 300 MG, 1 TAB ONCE IN AM
  19. SPIRIVA [Concomitant]
     Indication: ASTHMA
     Dosage: 24 HOUR XR

REACTIONS (42)
  - Condition aggravated [Not Recovered/Not Resolved]
  - Anxiety [Not Recovered/Not Resolved]
  - Contusion [Not Recovered/Not Resolved]
  - Pituitary-dependent Cushing^s syndrome [Not Recovered/Not Resolved]
  - Pituitary-dependent Cushing^s syndrome [Not Recovered/Not Resolved]
  - Depression [Not Recovered/Not Resolved]
  - Fat tissue increased [Not Recovered/Not Resolved]
  - Haemorrhage [Not Recovered/Not Resolved]
  - Hypertension [Not Recovered/Not Resolved]
  - Mental disorder [Not Recovered/Not Resolved]
  - Muscle atrophy [Not Recovered/Not Resolved]
  - Skin discolouration [Not Recovered/Not Resolved]
  - Activities of daily living impaired [Unknown]
  - Body fat disorder [Not Recovered/Not Resolved]
  - Muscle atrophy [Not Recovered/Not Resolved]
  - Cushingoid [Not Recovered/Not Resolved]
  - Skin striae [Not Recovered/Not Resolved]
  - Drug level changed [Not Recovered/Not Resolved]
  - Depersonalisation [Not Recovered/Not Resolved]
  - Crying [Not Recovered/Not Resolved]
  - Agoraphobia [Not Recovered/Not Resolved]
  - Paranoia [Not Recovered/Not Resolved]
  - Tachycardia [Not Recovered/Not Resolved]
  - Dysphagia [Not Recovered/Not Resolved]
  - Aptyalism [Not Recovered/Not Resolved]
  - Ataxia [Not Recovered/Not Resolved]
  - Circadian rhythm sleep disorder [Not Recovered/Not Resolved]
  - Dizziness [Not Recovered/Not Resolved]
  - Staring [Not Recovered/Not Resolved]
  - Amnesia [Not Recovered/Not Resolved]
  - Urinary retention [Not Recovered/Not Resolved]
  - Pancreatitis [Not Recovered/Not Resolved]
  - Contusion [Not Recovered/Not Resolved]
  - Drug interaction [Unknown]
  - Hypertension [Not Recovered/Not Resolved]
  - Drug resistance [Not Recovered/Not Resolved]
  - Intentional drug misuse [Unknown]
  - Fatigue [Not Recovered/Not Resolved]
  - Blood triglycerides abnormal [Unknown]
  - Blood cholesterol abnormal [Unknown]
  - Nausea [Unknown]
  - Vomiting [Unknown]
